FAERS Safety Report 10485915 (Version 3)
Quarter: 2014Q4

REPORT INFORMATION
  Report Type: Spontaneous
  Country: FR (occurrence: FR)
  Receive Date: 20141001
  Receipt Date: 20141015
  Transmission Date: 20150528
  Serious: Yes (Death, Hospitalization)
  Sender: FDA-Public Use
  Company Number: FR-ASTRAZENECA-2014SE68706

PATIENT
  Age: 27510 Day
  Sex: Female

DRUGS (10)
  1. INIPOMP [Concomitant]
     Active Substance: PANTOPRAZOLE SODIUM
  2. XYLOCAINE [Suspect]
     Active Substance: LIDOCAINE HYDROCHLORIDE
     Indication: LUNG DISORDER
     Route: 055
     Dates: start: 20131205, end: 20131205
  3. PULMICORT TURBUHALER [Suspect]
     Active Substance: BUDESONIDE
     Indication: LUNG DISORDER
     Route: 055
     Dates: start: 20131205, end: 20131205
  4. DOXYCYCLINE. [Concomitant]
     Active Substance: DOXYCYCLINE
     Indication: LUNG INFECTION
     Route: 065
     Dates: start: 20131204, end: 20131208
  5. QVAR [Concomitant]
     Active Substance: BECLOMETHASONE DIPROPIONATE
  6. RULID [Concomitant]
     Active Substance: ROXITHROMYCIN
  7. BRONCHOKOD [Concomitant]
     Active Substance: CARBOCYSTEINE
     Indication: LUNG INFECTION
     Route: 065
     Dates: start: 20131203, end: 20131208
  8. PREDNISOLONE. [Concomitant]
     Active Substance: PREDNISOLONE
     Indication: LUNG INFECTION
     Route: 065
     Dates: start: 20131203, end: 20131208
  9. NASACORT [Concomitant]
     Active Substance: TRIAMCINOLONE ACETONIDE
  10. IZILOX [Concomitant]
     Active Substance: MOXIFLOXACIN HYDROCHLORIDE
     Indication: LUNG INFECTION
     Route: 065
     Dates: start: 20131203, end: 20131204

REACTIONS (4)
  - Death [Fatal]
  - Hypoaesthesia [Unknown]
  - Muscle spasms [Unknown]
  - Dyspnoea [Unknown]

NARRATIVE: CASE EVENT DATE: 20131205
